FAERS Safety Report 4293649-0 (Version None)
Quarter: 2004Q1

REPORT INFORMATION
  Report Type: 
  Country: None (occurrence: None)
  Receive Date: 20040212
  Receipt Date: 20020208
  Transmission Date: 20041129
  Serious: Yes (Hospitalization, Other)
  Sender: FDA-Public Use
  Company Number: PHEH2002US01608

PATIENT
  Age: 50 Year
  Sex: Female

DRUGS (2)
  1. SANDOSTATIN LAR [Suspect]
     Indication: PULMONARY INTERSTITIAL EMPHYSEMA SYNDROME
     Dosage: 60 MG, BIW
  2. SANDOSTATIN [Suspect]
     Indication: CARCINOID SYNDROME
     Dosage: 200 UG, 5QD

REACTIONS (13)
  - ASTHMA [None]
  - BLOOD GLUCOSE FLUCTUATION [None]
  - CARCINOID SYNDROME [None]
  - CHEST PAIN [None]
  - CONDITION AGGRAVATED [None]
  - DIARRHOEA [None]
  - DYSPNOEA [None]
  - FLUSHING [None]
  - HAEMOPTYSIS [None]
  - HYPERHIDROSIS [None]
  - INJECTION SITE PAIN [None]
  - MEDICAL DEVICE COMPLICATION [None]
  - PANCREATITIS RELAPSING [None]
